FAERS Safety Report 24257420 (Version 1)
Quarter: 2024Q3

REPORT INFORMATION
  Report Type: Spontaneous
  Country: US (occurrence: US)
  Receive Date: 20240828
  Receipt Date: 20240828
  Transmission Date: 20241017
  Serious: Yes (Hospitalization, Other)
  Sender: SKG Pharma
  Company Number: US-SKG-000001

PATIENT
  Age: 52 Year
  Sex: Male

DRUGS (3)
  1. NICARDIPINE [Suspect]
     Active Substance: NICARDIPINE
     Indication: Hypertension
     Route: 042
  2. NICARDIPINE [Suspect]
     Active Substance: NICARDIPINE
     Indication: Hypertension
     Dosage: DRUG INCREMENT OF 2.5 MG/H EVERY 5-15 MIN
     Route: 042
  3. NICARDIPINE [Suspect]
     Active Substance: NICARDIPINE
     Indication: Hypertension
     Route: 042

REACTIONS (2)
  - Anaphylactoid reaction [Recovered/Resolved]
  - Hypertension [Unknown]
